FAERS Safety Report 26117866 (Version 1)
Quarter: 2025Q4

REPORT INFORMATION
  Report Type: Spontaneous
  Country: US (occurrence: None)
  Receive Date: 20251203
  Receipt Date: 20251203
  Transmission Date: 20260117
  Serious: Yes (Hospitalization)
  Sender: FDA-CTU
  Company Number: None

PATIENT
  Sex: Male

DRUGS (1)
  1. HYMPAVZI [Suspect]
     Active Substance: MARSTACIMAB-HNCQ
     Indication: Factor IX deficiency
     Dosage: 150 MG EVERY 7 DAYS SUBCUTANEOUS
     Route: 058
     Dates: start: 20250505

REACTIONS (1)
  - Nephrolithiasis [None]
